FAERS Safety Report 15254102 (Version 5)
Quarter: 2018Q4

REPORT INFORMATION
  Report Type: Report from Study
  Country: CO (occurrence: CO)
  Receive Date: 20180808
  Receipt Date: 20181219
  Transmission Date: 20190204
  Serious: Yes (Hospitalization)
  Sender: FDA-Public Use
  Company Number: CO-ASTELLAS-2018US035170

PATIENT
  Age: 57 Year
  Sex: Male

DRUGS (3)
  1. TACROLIMUS. [Suspect]
     Active Substance: TACROLIMUS
     Indication: RENAL TRANSPLANT
     Route: 048
     Dates: start: 20160312
  2. TACROLIMUS. [Suspect]
     Active Substance: TACROLIMUS
     Route: 048
  3. TACROLIMUS. [Suspect]
     Active Substance: TACROLIMUS
     Indication: RENAL TRANSPLANT
     Route: 048

REACTIONS (5)
  - Urinary tract infection [Recovering/Resolving]
  - Urinary tract infection [Recovering/Resolving]
  - Prostatitis [Recovering/Resolving]
  - Urinary tract infection [Recovered/Resolved]
  - Inappropriate schedule of product administration [Unknown]

NARRATIVE: CASE EVENT DATE: 20180630
